FAERS Safety Report 23276045 (Version 1)
Quarter: 2023Q4

REPORT INFORMATION
  Report Type: Spontaneous
  Country: NO (occurrence: NO)
  Receive Date: 20231208
  Receipt Date: 20231208
  Transmission Date: 20240110
  Serious: Yes (Other)
  Sender: FDA-Public Use
  Company Number: None

PATIENT
  Age: 59 Year
  Sex: Male

DRUGS (2)
  1. OLANZAPINE [Suspect]
     Active Substance: OLANZAPINE
     Indication: Substance-induced psychotic disorder
     Route: 048
     Dates: start: 1992
  2. OLANZAPINE [Suspect]
     Active Substance: OLANZAPINE
     Indication: Substance-induced psychotic disorder
     Dosage: DAILY DOSE: 2.5 MILLIGRAM
     Route: 048

REACTIONS (2)
  - Parkinsonism [Not Recovered/Not Resolved]
  - Tardive dyskinesia [Not Recovered/Not Resolved]

NARRATIVE: CASE EVENT DATE: 20231001
